FAERS Safety Report 6898696-8 (Version None)
Quarter: 2010Q3

REPORT INFORMATION
  Report Type: 
  Country: None (occurrence: None)
  Receive Date: 20100802
  Receipt Date: 20071109
  Transmission Date: 20110219
  Serious: Yes (Other)
  Sender: FDA-Public Use
  Company Number: US-PFIZER INC-2007088760

PATIENT
  Sex: Female
  Weight: 54.4 kg

DRUGS (3)
  1. LYRICA [Suspect]
     Indication: PARAESTHESIA
     Dates: start: 20071019
  2. VICODIN [Concomitant]
  3. SOMA [Concomitant]

REACTIONS (3)
  - LETHARGY [None]
  - PAIN [None]
  - SEDATION [None]
